FAERS Safety Report 16796578 (Version 1)
Quarter: 2019Q3

REPORT INFORMATION
  Report Type: Spontaneous
  Country: US (occurrence: US)
  Receive Date: 20190911
  Receipt Date: 20190911
  Transmission Date: 20191005
  Serious: Yes (Other)
  Sender: FDA-Public Use
  Company Number: US-BAUSCH-BL-2019-024958

PATIENT
  Sex: Female
  Weight: 72.64 kg

DRUGS (9)
  1. SORBIC ACID [Suspect]
     Active Substance: SORBIC ACID
     Indication: DRY EYE
     Route: 047
     Dates: start: 201906, end: 201908
  2. AMLODIPINE [Concomitant]
     Active Substance: AMLODIPINE BESYLATE
     Indication: PRODUCT USED FOR UNKNOWN INDICATION
     Route: 048
  3. NEXIUM [Concomitant]
     Active Substance: ESOMEPRAZOLE MAGNESIUM
     Indication: PRODUCT USED FOR UNKNOWN INDICATION
     Route: 048
  4. SOOTHE HYDRATION [Suspect]
     Active Substance: POVIDONE
     Indication: DRY EYE
     Dosage: 1 GTT IN EACH EYE AS NEEDED, 4 TO 5 TIMES DAILY
     Route: 047
     Dates: start: 201906, end: 201908
  5. MIRALAX [Concomitant]
     Active Substance: POLYETHYLENE GLYCOL 3350
     Indication: PRODUCT USED FOR UNKNOWN INDICATION
     Route: 048
  6. LISINOPRIL. [Concomitant]
     Active Substance: LISINOPRIL
     Indication: PRODUCT USED FOR UNKNOWN INDICATION
     Route: 048
  7. LINZESS [Concomitant]
     Active Substance: LINACLOTIDE
     Indication: PRODUCT USED FOR UNKNOWN INDICATION
     Route: 048
  8. SYSTANE (HYPROMELLOSE 2910 (4000 MPA.S)) [Suspect]
     Active Substance: HYPROMELLOSE 2910 (4000 MPA.S)
     Indication: DRY EYE
     Route: 065
     Dates: start: 20190824
  9. EDETATE DISODIUM [Suspect]
     Active Substance: EDETATE DISODIUM
     Indication: DRY EYE
     Route: 047
     Dates: start: 201906, end: 201908

REACTIONS (3)
  - Eye haemorrhage [Recovering/Resolving]
  - Sinus disorder [Unknown]
  - Periorbital pain [Not Recovered/Not Resolved]

NARRATIVE: CASE EVENT DATE: 2019
